FAERS Safety Report 5902136-2 (Version None)
Quarter: 2008Q3

REPORT INFORMATION
  Report Type: 
  Country: None (occurrence: None)
  Receive Date: 20080929
  Receipt Date: 20080917
  Transmission Date: 20090109
  Serious: Yes (Other)
  Sender: FDA-Public Use
  Company Number: BR-PFIZER INC-2008079159

PATIENT
  Sex: Male

DRUGS (1)
  1. DETRUSITOL LA [Suspect]
     Indication: BLADDER DISORDER
     Route: 048
     Dates: start: 20070811

REACTIONS (2)
  - DYSURIA [None]
  - PAIN [None]
